FAERS Safety Report 8438871 (Version 4)
Quarter: 2013Q3

REPORT INFORMATION
  Report Type: Report from Study
  Country: SE (occurrence: SE)
  Receive Date: 20120302
  Receipt Date: 20130906
  Transmission Date: 20140515
  Serious: Yes (Hospitalization)
  Sender: FDA-Public Use
  Company Number: PHHO2012SE003244

PATIENT
  Age: 67 Year
  Sex: Female
  Weight: 97.7 kg

DRUGS (11)
  1. ALISKIREN [Suspect]
     Dosage: 300 MG, UNK
     Dates: start: 20111219, end: 20120109
  2. NO TREATMENT RECEIVED [Suspect]
     Indication: CARDIOVASCULAR DISORDER
     Dosage: ACTIVE RUN IN PHASE
  3. ENALAPRIL [Suspect]
     Dosage: 20 MG, UNK
     Dates: start: 20090225
  4. HYDROCHLOROTHIAZIDE [Concomitant]
     Dosage: 25 MG, UNK
     Dates: start: 20111219, end: 20120109
  5. BIGUANIDES [Concomitant]
     Dosage: UNK
  6. METOPROLOL [Concomitant]
  7. MINDIAB [Concomitant]
  8. LITAREX [Concomitant]
  9. ATARAX [Concomitant]
  10. LEVAXIN [Concomitant]
  11. FENURIL [Concomitant]

REACTIONS (1)
  - Drug interaction [Recovered/Resolved]
